FAERS Safety Report 9358945 (Version 1)
Quarter: 2013Q2

REPORT INFORMATION
  Report Type: Spontaneous
  Country: FR (occurrence: FR)
  Receive Date: 20130620
  Receipt Date: 20130620
  Transmission Date: 20140414
  Serious: Yes (Hospitalization)
  Sender: FDA-Public Use
  Company Number: FR-PFIZER INC-2013180264

PATIENT
  Age: 49 Year
  Sex: Female

DRUGS (6)
  1. ADEPAL [Suspect]
     Indication: ORAL CONTRACEPTION
     Dosage: 1 DF, 1X/DAY
     Route: 048
     Dates: start: 20080811, end: 20130123
  2. PROZAC [Suspect]
     Indication: DEPRESSION
     Dosage: 10 MG, 1X/DAY
     Route: 048
     Dates: start: 20120518, end: 20130125
  3. DIPIPERON [Concomitant]
     Indication: INTENTIONAL SELF-INJURY
     Dosage: 1 DF IN THE MORNING, HALF DF AT LUNCH, 1 DF IN THE EVENING
     Route: 048
  4. LEPTICUR [Concomitant]
     Indication: PARKINSONISM
     Dosage: 1 DF, 1X/DAY
     Route: 048
     Dates: end: 20130215
  5. XANAX [Concomitant]
     Indication: ANXIETY
     Dosage: 0.50 MG, 2X/DAY
     Route: 048
  6. LEVOTHYROX [Concomitant]
     Indication: HYPOTHYROIDISM
     Dosage: 125 UG, 1X/DAY
     Route: 048

REACTIONS (1)
  - Hepatocellular injury [Recovered/Resolved]
